FAERS Safety Report 5028447-3 (Version None)
Quarter: 2006Q2

REPORT INFORMATION
  Report Type: 
  Country: None (occurrence: None)
  Receive Date: 20060617
  Receipt Date: 20060613
  Transmission Date: 20061013
  Serious: Yes (Other)
  Sender: FDA-Public Use
  Company Number: CA-GLAXOSMITHKLINE-A0609020A

PATIENT
  Age: 28 Year
  Sex: Female

DRUGS (1)
  1. ZIAGEN [Suspect]
     Indication: DRUG USE FOR UNKNOWN INDICATION
     Route: 048

REACTIONS (12)
  - ABDOMINAL PAIN UPPER [None]
  - ABSCESS [None]
  - BONE MARROW FAILURE [None]
  - CHOLESTASIS [None]
  - DYSPEPSIA [None]
  - HEPATOMEGALY [None]
  - HYPERSENSITIVITY [None]
  - LACTIC ACIDOSIS [None]
  - NAUSEA [None]
  - RENAL FAILURE [None]
  - TACHYPNOEA [None]
  - VOMITING [None]
